FAERS Safety Report 6402383-X (Version None)
Quarter: 2009Q4

REPORT INFORMATION
  Report Type: 
  Country: None (occurrence: None)
  Receive Date: 20091015
  Receipt Date: 20091006
  Transmission Date: 20100525
  Serious: Yes (Hospitalization)
  Sender: FDA-Public Use
  Company Number: PHHO2009US08586

PATIENT
  Sex: Male
  Weight: 87.528 kg

DRUGS (16)
  1. RAD 666 RAD+TAB [Suspect]
     Indication: RENAL CELL CARCINOMA
     Dosage: 35 MG WEEKLY
     Route: 048
     Dates: start: 20081215, end: 20090629
  2. RAD 666 RAD+TAB [Suspect]
     Dosage: 35 MG WEEKLY
     Route: 048
     Dates: start: 20090706
  3. SORAFENIB [Suspect]
     Indication: RENAL CELL CARCINOMA
     Dosage: 400 MG, QD
     Route: 048
     Dates: start: 20081215, end: 20090703
  4. SORAFENIB [Suspect]
     Dosage: 400 MG, QD
     Route: 048
     Dates: start: 20090705
  5. ATENOLOL [Concomitant]
  6. NEXIUM [Concomitant]
  7. LISINOPRIL [Concomitant]
  8. SIMVASTATIN [Concomitant]
  9. TENORMIN [Concomitant]
  10. ASPIRIN [Concomitant]
  11. RESTORIL [Concomitant]
  12. COMPAZINE [Concomitant]
  13. PERIACTIN [Concomitant]
  14. ZOCOR [Concomitant]
  15. HYTRIN [Concomitant]
  16. ZESTRIL [Concomitant]

REACTIONS (12)
  - ANAEMIA [None]
  - ASTHENIA [None]
  - COLITIS [None]
  - DIARRHOEA HAEMORRHAGIC [None]
  - DIVERTICULUM [None]
  - ESCHERICHIA INFECTION [None]
  - GASTROINTESTINAL HAEMORRHAGE [None]
  - HAEMOGLOBIN DECREASED [None]
  - HAEMOPTYSIS [None]
  - JEJUNOSTOMY REFASHIONING [None]
  - NAUSEA [None]
  - VOMITING [None]
